FAERS Safety Report 19804213 (Version 1)
Quarter: 2021Q3

REPORT INFORMATION
  Report Type: Spontaneous
  Country: US (occurrence: US)
  Receive Date: 20210908
  Receipt Date: 20210908
  Transmission Date: 20211014
  Serious: No
  Sender: FDA-Public Use
  Company Number: US-FARMAPROD-202012-1690

PATIENT
  Age: 68 Year
  Sex: Male

DRUGS (18)
  1. JAKAFI [Concomitant]
     Active Substance: RUXOLITINIB
  2. AZITHROMYCIN ANHYDROUS. [Concomitant]
     Active Substance: AZITHROMYCIN ANHYDROUS
  3. TEARS [Concomitant]
     Active Substance: LANOLIN\PARAFFIN
  4. MULTIVITAMINES [Concomitant]
     Active Substance: VITAMINS
  5. ALBUMINEX [Concomitant]
     Active Substance: ALBUMIN HUMAN-KJDA
     Dosage: VIAL
  6. VITAMIN D?400 [Concomitant]
  7. LISINOPRIL. [Concomitant]
     Active Substance: LISINOPRIL
  8. LEVOTHYROXINE. [Concomitant]
     Active Substance: LEVOTHYROXINE
  9. CARVEDILOL. [Concomitant]
     Active Substance: CARVEDILOL
  10. ACICLOVIR [Concomitant]
     Active Substance: ACYCLOVIR
  11. TACROLIMUS. [Concomitant]
     Active Substance: TACROLIMUS
  12. OXERVATE [Suspect]
     Active Substance: CENEGERMIN-BKBJ
     Indication: NEUROTROPHIC KERATOPATHY
     Route: 047
     Dates: start: 20201210, end: 20201221
  13. ACICLOVIR [Concomitant]
     Active Substance: ACYCLOVIR
  14. OCUVITE ADULT 50 PLUS [Concomitant]
  15. ROSUVASTATIN CALCIUM. [Concomitant]
     Active Substance: ROSUVASTATIN CALCIUM
  16. POSACONAZOLE [Concomitant]
     Active Substance: POSACONAZOLE
     Dosage: DELAYED RELEASE TABLET
  17. BACTRIM DS [Concomitant]
     Active Substance: SULFAMETHOXAZOLE\TRIMETHOPRIM
     Dosage: 800?600 MG
  18. MURO?128 [Concomitant]

REACTIONS (4)
  - Eye pain [Recovered/Resolved]
  - Ocular discomfort [Recovered/Resolved]
  - Erythema of eyelid [Unknown]
  - Visual impairment [Unknown]

NARRATIVE: CASE EVENT DATE: 202012
